FAERS Safety Report 4582449-X (Version None)
Quarter: 2005Q1

REPORT INFORMATION
  Report Type: 
  Country: None (occurrence: None)
  Receive Date: 20050125
  Receipt Date: 20041006
  Transmission Date: 20050727
  Serious: No
  Sender: FDA-Public Use
  Company Number: REM_00072_2004

PATIENT
  Age: 56 Year
  Sex: Female

DRUGS (2)
  1. REMODULIN [Suspect]
     Indication: PULMONARY HYPERTENSION
     Dosage: 35 NG/KG/MIN CONTINOUS SC
     Route: 058
     Dates: start: 20040404
  2. DICLOXACILLIN [Suspect]

REACTIONS (1)
  - AGEUSIA [None]
